FAERS Safety Report 7325150-1 (Version None)
Quarter: 2011Q1

REPORT INFORMATION
  Report Type: 
  Country: None (occurrence: None)
  Receive Date: 20110302
  Receipt Date: 20110218
  Transmission Date: 20110831
  Serious: Yes (Other)
  Sender: FDA-Public Use
  Company Number: PHHY2011DE13147

PATIENT
  Sex: Male

DRUGS (4)
  1. AFINITOR [Suspect]
     Indication: RENAL CELL CARCINOMA
     Dosage: 10 MG, PER DAY
     Route: 048
     Dates: start: 20110206, end: 20110213
  2. CONCOR [Concomitant]
     Indication: HYPERTENSION
     Dosage: 5 MG, PER DAY
     Route: 048
     Dates: start: 20110214
  3. PANTOZOL [Concomitant]
     Indication: GASTRITIS PROPHYLAXIS
     Dosage: 40 MG, PER DAY
     Route: 048
     Dates: start: 20100922
  4. FORTECORTIN [Concomitant]
     Indication: METASTASES TO CENTRAL NERVOUS SYSTEM
     Dosage: 4 MG,PER DAY
     Route: 048
     Dates: start: 20110104

REACTIONS (1)
  - SUPRAVENTRICULAR TACHYCARDIA [None]
